FAERS Safety Report 10562942 (Version 1)
Quarter: 2014Q4

REPORT INFORMATION
  Report Type: Spontaneous
  Country: US (occurrence: None)
  Receive Date: 20141103
  Receipt Date: 20141103
  Transmission Date: 20150529
  Serious: No
  Sender: FDA-Public Use
  Company Number: None

PATIENT
  Age: 65 Year
  Sex: Female
  Weight: 108.86 kg

DRUGS (1)
  1. LANTUS SOLOSTAR [Suspect]
     Active Substance: INSULIN GLARGINE
     Indication: DIABETES MELLITUS
     Dosage: 14 UNITS; ONCE DAILY; GIVEN INTO/UNDER THE SKIN
     Dates: start: 20141022

REACTIONS (3)
  - Economic problem [None]
  - Product quality issue [None]
  - Product packaging issue [None]

NARRATIVE: CASE EVENT DATE: 20141018
